FAERS Safety Report 21662834 (Version 3)
Quarter: 2023Q4

REPORT INFORMATION
  Report Type: Spontaneous
  Country: US (occurrence: US)
  Receive Date: 20221130
  Receipt Date: 20231213
  Transmission Date: 20240109
  Serious: Yes (Hospitalization, Other)
  Sender: FDA-Public Use
  Company Number: US-SA-2022SA482908

PATIENT
  Sex: Female

DRUGS (10)
  1. INSULIN GLARGINE [Suspect]
     Active Substance: INSULIN GLARGINE
     Indication: Type 1 diabetes mellitus
     Dosage: UNK
  2. INSULIN LISPRO [Suspect]
     Active Substance: INSULIN LISPRO
     Indication: Type 1 diabetes mellitus
     Dosage: PUMP
  3. INSULIN LISPRO [Suspect]
     Active Substance: INSULIN LISPRO
     Dosage: UNK
     Route: 058
  4. INSULIN LISPRO [Suspect]
     Active Substance: INSULIN LISPRO
     Dosage: UNK, INCREMENTALLY INCREASED
     Route: 042
  5. INSULIN HUMAN [Suspect]
     Active Substance: INSULIN HUMAN
     Indication: Type 1 diabetes mellitus
     Dosage: UNK
  6. INSULIN GLULISINE [Suspect]
     Active Substance: INSULIN GLULISINE
     Indication: Type 1 diabetes mellitus
     Dosage: UNK
  7. INSULIN ASPART [Suspect]
     Active Substance: INSULIN ASPART
     Indication: Type 1 diabetes mellitus
     Dosage: UNK
  8. INSULIN NOS [Suspect]
     Active Substance: INSULIN NOS
     Indication: Type 1 diabetes mellitus
     Dosage: UNK
  9. INSULIN DETEMIR [Suspect]
     Active Substance: INSULIN DETEMIR
     Indication: Type 1 diabetes mellitus
     Dosage: UNK
  10. INSULIN DETEMIR [Suspect]
     Active Substance: INSULIN DETEMIR
     Dosage: UNK
     Route: 058

REACTIONS (6)
  - Type III immune complex mediated reaction [Not Recovered/Not Resolved]
  - Erythema [Not Recovered/Not Resolved]
  - Swelling [Not Recovered/Not Resolved]
  - Skin lesion [Not Recovered/Not Resolved]
  - Contusion [Not Recovered/Not Resolved]
  - Pain in extremity [Not Recovered/Not Resolved]
